FAERS Safety Report 7941700-6 (Version None)
Quarter: 2011Q4

REPORT INFORMATION
  Report Type: 
  Country: None (occurrence: None)
  Receive Date: 20111128
  Receipt Date: 20111128
  Transmission Date: 20120403
  Serious: Yes (Hospitalization)
  Sender: FDA-Public Use
  Company Number: None

PATIENT
  Age: 67 Year
  Sex: Male
  Weight: 78.6 kg

DRUGS (1)
  1. CEFEPIME [Suspect]
     Indication: SEPSIS
     Dosage: 1 GRAM
     Route: 042
     Dates: start: 20111117, end: 20111121

REACTIONS (2)
  - MENTAL STATUS CHANGES [None]
  - CONFUSIONAL STATE [None]
